FAERS Safety Report 8044005-0 (Version None)
Quarter: 2012Q1

REPORT INFORMATION
  Report Type: 
  Country: None (occurrence: None)
  Receive Date: 20120113
  Receipt Date: 20120105
  Transmission Date: 20120608
  Serious: Yes (Other)
  Sender: FDA-Public Use
  Company Number: US-ELI_LILLY_AND_COMPANY-US201201000293

PATIENT
  Age: 81 Year
  Sex: Female

DRUGS (2)
  1. OLANZAPINE [Suspect]
     Indication: DEPRESSION
     Dosage: 2.5 MG, BID
  2. ZYPREXA [Suspect]
     Indication: DEPRESSION
     Dosage: 2.5 MG, BID

REACTIONS (3)
  - WHITE BLOOD CELL COUNT DECREASED [None]
  - BLOOD COUNT ABNORMAL [None]
  - OFF LABEL USE [None]
